FAERS Safety Report 8071744-8 (Version None)
Quarter: 2012Q1

REPORT INFORMATION
  Report Type: 
  Country: None (occurrence: None)
  Receive Date: 20120125
  Receipt Date: 20120118
  Transmission Date: 20120608
  Serious: Yes (Hospitalization)
  Sender: FDA-Public Use
  Company Number: US-MERCK-1106USA01962

PATIENT
  Age: 61 Year
  Sex: Female
  Weight: 63 kg

DRUGS (3)
  1. VITAMINS (UNSPECIFIED) [Concomitant]
     Route: 065
  2. FOSAMAX [Suspect]
     Indication: OSTEOPOROSIS
     Route: 048
     Dates: start: 20031201, end: 20101001
  3. CALCIUM (UNSPECIFIED) [Concomitant]
     Route: 065

REACTIONS (21)
  - ANAEMIA POSTOPERATIVE [None]
  - LIVER DISORDER [None]
  - FALL [None]
  - THROMBOCYTOPENIA [None]
  - ARTHROPATHY [None]
  - HYPOTHYROIDISM [None]
  - CHRONIC OBSTRUCTIVE PULMONARY DISEASE [None]
  - RENAL CYST [None]
  - DYSLIPIDAEMIA [None]
  - FEMUR FRACTURE [None]
  - BLOOD PRESSURE INCREASED [None]
  - HYPERTHYROIDISM [None]
  - LUNG NEOPLASM [None]
  - ROAD TRAFFIC ACCIDENT [None]
  - MUSCLE STRAIN [None]
  - BURSITIS [None]
  - LIGAMENT SPRAIN [None]
  - RIB FRACTURE [None]
  - HYPERTENSION [None]
  - CONSTIPATION [None]
  - COSTOCHONDRITIS [None]
